FAERS Safety Report 5236923-3 (Version None)
Quarter: 2007Q1

REPORT INFORMATION
  Report Type: 
  Country: None (occurrence: None)
  Receive Date: 20070213
  Receipt Date: 20070201
  Transmission Date: 20070707
  Serious: Yes (Hospitalization)
  Sender: FDA-Public Use
  Company Number: FR-BAYER-200710091BFR

PATIENT
  Age: 36 Year
  Sex: Female

DRUGS (8)
  1. MOXIFLOXACIN HYDROCHLORIDE [Suspect]
     Indication: UNEVALUABLE EVENT
     Route: 048
     Dates: start: 20061115, end: 20061203
  2. SOLUPRED [Suspect]
     Indication: UNEVALUABLE EVENT
     Route: 048
     Dates: start: 20061115, end: 20061203
  3. PYOSTACINE [Suspect]
     Indication: UNEVALUABLE EVENT
     Route: 048
     Dates: start: 20061115, end: 20061203
  4. LEVOTHYROXINE SODIUM [Concomitant]
     Indication: UNEVALUABLE EVENT
  5. AVLOCARDYL [Concomitant]
     Indication: UNEVALUABLE EVENT
  6. OMEPRAZOLE [Concomitant]
     Indication: UNEVALUABLE EVENT
  7. CETIRIZINE HCL [Concomitant]
     Indication: UNEVALUABLE EVENT
  8. GESTODENE AND ETHINYL ESTRADIOL [Concomitant]
     Indication: UNEVALUABLE EVENT

REACTIONS (1)
  - VASCULAR PURPURA [None]
